FAERS Safety Report 16530926 (Version 2)
Quarter: 2019Q4

REPORT INFORMATION
  Report Type: Spontaneous
  Country: US (occurrence: US)
  Receive Date: 20190704
  Receipt Date: 20191114
  Transmission Date: 20200122
  Serious: Yes (Life-Threatening, Hospitalization, Other)
  Sender: FDA-Public Use
  Company Number: US-BRISTOL-MYERS SQUIBB COMPANY-BMS-2019-064114

PATIENT
  Age: 62 Year
  Sex: Male
  Weight: 147 kg

DRUGS (16)
  1. ULTRAM [Concomitant]
     Active Substance: TRAMADOL HYDROCHLORIDE
     Indication: PAIN
     Dosage: 1 DOSAGE FORM, Q6H (AS NEEDED)
     Route: 048
     Dates: start: 20170108
  2. TRESIBA [Concomitant]
     Active Substance: INSULIN DEGLUDEC
     Indication: DIABETES MELLITUS
     Dosage: 50 UNIT, BID
     Route: 058
  3. COZAAR [Concomitant]
     Active Substance: LOSARTAN POTASSIUM
     Indication: HYPERTENSION
     Dosage: 100 MILLIGRAM, QD
     Route: 048
  4. TYLENOL [Concomitant]
     Active Substance: ACETAMINOPHEN
     Indication: PAIN
     Dosage: 1 DOSAGE FORM, Q6H (AS NEEDED)
     Route: 048
     Dates: start: 20170108
  5. COLACE [Concomitant]
     Active Substance: DOCUSATE SODIUM
     Indication: CONSTIPATION
     Dosage: 100 MILLIGRAM, AT BED TIME AS NEEDED
     Route: 048
  6. FORTAMET ER [Concomitant]
     Indication: DIABETES MELLITUS
     Dosage: 2000 MILLIGRAM, QD (EVERY NIGHT AT BED TIME)
     Route: 048
     Dates: start: 20161130
  7. LASIX [Concomitant]
     Active Substance: FUROSEMIDE
     Indication: PRODUCT USED FOR UNKNOWN INDICATION
     Dosage: 80 MILLIGRAM, QD (IN THE MORNING)
     Route: 048
  8. ZAROXOLYN [Concomitant]
     Active Substance: METOLAZONE
     Indication: OEDEMA PERIPHERAL
     Route: 065
  9. HUMALOG [Concomitant]
     Active Substance: INSULIN LISPRO
     Indication: DIABETES MELLITUS
     Dosage: UNK, TID
     Route: 058
  10. ZAROXOLYN [Concomitant]
     Active Substance: METOLAZONE
     Indication: WEIGHT INCREASED
     Dosage: 5 MILLIGRAM, QD (IN THE MORNING)
     Route: 048
     Dates: start: 20161221
  11. ELIQUIS [Suspect]
     Active Substance: APIXABAN
     Indication: CEREBROVASCULAR ACCIDENT PROPHYLAXIS
     Dosage: 5 MILLIGRAM, BID
     Route: 048
     Dates: start: 20160720
  12. ZOFRAN [Concomitant]
     Active Substance: ONDANSETRON HYDROCHLORIDE
     Indication: NAUSEA
     Dosage: 1 TAB, Q6H (AS NEEDED)
     Route: 048
     Dates: start: 20170109
  13. LASIX [Concomitant]
     Active Substance: FUROSEMIDE
     Indication: OEDEMA PERIPHERAL
     Dosage: 40 MILLIGRAM, QD (IN THE AFTERNOON)
     Route: 048
     Dates: start: 20161102
  14. MATZIM LA [Concomitant]
     Active Substance: DILTIAZEM HYDROCHLORIDE
     Indication: ATRIAL FIBRILLATION
     Dosage: 180 MILLIGRAM, QD
     Route: 048
     Dates: start: 20160826
  15. RYTHMOL [PROPAFENONE] [Concomitant]
     Active Substance: PROPAFENONE
     Indication: ATRIAL FIBRILLATION
     Dosage: 1 TAB, TID
     Route: 048
     Dates: start: 20161211
  16. MICRO K [Concomitant]
     Indication: HYPOKALAEMIA
     Dosage: 8 MILLIEQUIVALENT, QD
     Route: 048
     Dates: start: 20161116

REACTIONS (5)
  - Rectal haemorrhage [Recovered/Resolved]
  - Hypokalaemia [Unknown]
  - Anaemia [Unknown]
  - Hypotension [Unknown]
  - Polyp [Unknown]

NARRATIVE: CASE EVENT DATE: 20170113
